FAERS Safety Report 13237933 (Version 1)
Quarter: 2017Q1

REPORT INFORMATION
  Report Type: Spontaneous
  Country: US (occurrence: US)
  Receive Date: 20170216
  Receipt Date: 20170216
  Transmission Date: 20170428
  Serious: No
  Sender: FDA-Public Use
  Company Number: US-BIOGEN-2017BI00355847

PATIENT
  Sex: Female

DRUGS (1)
  1. TECFIDERA [Suspect]
     Active Substance: DIMETHYL FUMARATE
     Indication: MULTIPLE SCLEROSIS
     Route: 065
     Dates: start: 20140311

REACTIONS (8)
  - Pain [Unknown]
  - Confusional state [Unknown]
  - Memory impairment [Unknown]
  - Flushing [Recovered/Resolved]
  - Insomnia [Unknown]
  - Stress [Unknown]
  - Asthenia [Unknown]
  - Drug dose omission [Unknown]
